FAERS Safety Report 7794250-4 (Version None)
Quarter: 2011Q4

REPORT INFORMATION
  Report Type: 
  Country: None (occurrence: None)
  Receive Date: 20111004
  Receipt Date: 20110926
  Transmission Date: 20120403
  Serious: Yes (Other)
  Sender: FDA-Public Use
  Company Number: US-ASTELLAS-2011US006199

PATIENT
  Sex: Female

DRUGS (1)
  1. ERLOTINIB HYDROCHLORIDE [Suspect]
     Indication: MULTIPLE MYELOMA
     Dosage: 150 MG, UID/QD
     Route: 048
     Dates: start: 20110919

REACTIONS (3)
  - NEUROPATHY PERIPHERAL [None]
  - OFF LABEL USE [None]
  - CORNEAL DYSTROPHY [None]
